FAERS Safety Report 5079519-9 (Version None)
Quarter: 2006Q3

REPORT INFORMATION
  Report Type: 
  Country: None (occurrence: None)
  Receive Date: 20060814
  Receipt Date: 20051202
  Transmission Date: 20061208
  Serious: No
  Sender: FDA-Public Use
  Company Number: US-BRISTOL-MYERS SQUIBB COMPANY-13203088

PATIENT
  Age: 41 Year
  Sex: Male

DRUGS (2)
  1. GLUCOVANCE [Suspect]
  2. METFORMIN HYDROCHLORIDE [Concomitant]

REACTIONS (2)
  - HEADACHE [None]
  - RASH [None]
